FAERS Safety Report 20195072 (Version 1)
Quarter: 2021Q4

REPORT INFORMATION
  Report Type: Spontaneous
  Country: US (occurrence: US)
  Receive Date: 20211216
  Receipt Date: 20211216
  Transmission Date: 20220303
  Serious: Yes (Other)
  Sender: FDA-Public Use
  Company Number: US-FRESENIUS KABI-FK202113947

PATIENT
  Age: 72 Year
  Sex: Female

DRUGS (1)
  1. NOREPINEPHRINE BITARTRATE [Suspect]
     Active Substance: NOREPINEPHRINE BITARTRATE
     Indication: Hypotension
     Dosage: PERIPHERAL LINE IN THE DORSAL RIGHT HAND DURING AN EPISODE OF ACUTE HYPOTENSION
     Route: 042

REACTIONS (3)
  - Compartment syndrome [Not Recovered/Not Resolved]
  - Extravasation [Not Recovered/Not Resolved]
  - Necrosis [Not Recovered/Not Resolved]
